FAERS Safety Report 9310444 (Version 2)
Quarter: 2013Q3

REPORT INFORMATION
  Report Type: Spontaneous
  Country: US (occurrence: US)
  Receive Date: 20130527
  Receipt Date: 20130718
  Transmission Date: 20140515
  Serious: No
  Sender: FDA-Public Use
  Company Number: US-PFIZER INC-2013161069

PATIENT
  Sex: Female

DRUGS (3)
  1. LYRICA [Suspect]
     Indication: PAIN
     Dosage: 75 MG, 1X/DAY
     Route: 048
     Dates: start: 20130521, end: 201305
  2. LYRICA [Interacting]
     Dosage: 75 MG, 2X/DAY
     Route: 048
     Dates: start: 201305
  3. LISINOPRIL [Interacting]
     Indication: HYPERTENSION
     Dosage: UNK

REACTIONS (6)
  - Drug interaction [Unknown]
  - Dizziness [Unknown]
  - Somnolence [Unknown]
  - Balance disorder [Unknown]
  - Headache [Unknown]
  - Nausea [Unknown]
